FAERS Safety Report 5093394-8 (Version None)
Quarter: 2006Q3

REPORT INFORMATION
  Report Type: 
  Country: None (occurrence: None)
  Receive Date: 20060828
  Receipt Date: 20060810
  Transmission Date: 20061208
  Serious: Yes (Other)
  Sender: FDA-Public Use
  Company Number: DSA_28594_2006

PATIENT
  Age: 53 Year
  Sex: Male

DRUGS (6)
  1. LORAX [Suspect]
     Indication: ANXIETY
     Dosage: 2 MG Q DAY PO
     Route: 048
     Dates: start: 20051101, end: 20051201
  2. LORAX [Suspect]
     Indication: INSOMNIA
     Dosage: 2 MG Q DAY PO
     Route: 048
     Dates: start: 20051101, end: 20051201
  3. LORAX [Suspect]
     Indication: ANXIETY
     Dosage: 4 MG Q DAY PO
     Route: 048
     Dates: start: 20051101, end: 20051101
  4. LORAX [Suspect]
     Indication: INSOMNIA
     Dosage: 4 MG Q DAY PO
     Route: 048
     Dates: start: 20051101, end: 20051101
  5. LORAX [Suspect]
     Indication: ANXIETY
     Dosage: 2 MG Q DAY PO
     Route: 048
     Dates: start: 19860101, end: 20051101
  6. LORAX [Suspect]
     Indication: INSOMNIA
     Dosage: 2 MG Q DAY PO
     Route: 048
     Dates: start: 19860101, end: 20051101

REACTIONS (5)
  - DEPRESSED MOOD [None]
  - DEPRESSION [None]
  - DRUG WITHDRAWAL SYNDROME [None]
  - IRRITABILITY [None]
  - WEIGHT DECREASED [None]
